FAERS Safety Report 17000160 (Version 1)
Quarter: 2019Q4

REPORT INFORMATION
  Report Type: Spontaneous
  Country: US (occurrence: US)
  Receive Date: 20191106
  Receipt Date: 20191106
  Transmission Date: 20200122
  Serious: Yes (Other)
  Sender: FDA-Public Use
  Company Number: US-MYLANLABS-2019M1106556

PATIENT
  Age: 55 Year
  Sex: Male

DRUGS (4)
  1. PERTUZUMAB. [Suspect]
     Active Substance: PERTUZUMAB
     Indication: RECTAL CANCER METASTATIC
     Route: 065
  2. TRASTUZUMAB. [Suspect]
     Active Substance: TRASTUZUMAB
     Indication: RECTAL CANCER METASTATIC
     Dosage: UNK
     Route: 042
  3. TRASTUZUMAB. [Suspect]
     Active Substance: TRASTUZUMAB
     Dosage: EVERY 3 WEEKS
     Route: 042
  4. LAPATINIB [Suspect]
     Active Substance: LAPATINIB
     Indication: RECTAL CANCER METASTATIC
     Dosage: 1000 MILLIGRAM, QD
     Route: 048

REACTIONS (2)
  - Multiple-drug resistance [Unknown]
  - Off label use [Unknown]
